FAERS Safety Report 4817261-7 (Version None)
Quarter: 2005Q4

REPORT INFORMATION
  Report Type: 
  Country: None (occurrence: None)
  Receive Date: 20051101
  Receipt Date: 20051021
  Transmission Date: 20060501
  Serious: Yes (Other)
  Sender: FDA-Public Use
  Company Number: US-JNJFOC-20050805450

PATIENT
  Sex: Male
  Weight: 110.22 kg

DRUGS (2)
  1. TOPAMAX [Suspect]
     Route: 048
  2. TOPAMAX [Suspect]
     Indication: WEIGHT LOSS DIET
     Route: 048

REACTIONS (4)
  - FAECAL INCONTINENCE [None]
  - HAEMORRHOIDS [None]
  - OCULAR HYPERAEMIA [None]
  - SURGERY [None]
